FAERS Safety Report 8126354-0 (Version None)
Quarter: 2012Q1

REPORT INFORMATION
  Report Type: 
  Country: None (occurrence: None)
  Receive Date: 20120209
  Receipt Date: 20120206
  Transmission Date: 20120608
  Serious: Yes (Hospitalization, Other)
  Sender: FDA-Public Use
  Company Number: NO-BAXTER-2011BH036199

PATIENT
  Sex: Female

DRUGS (6)
  1. GAMMAGARD LIQUID [Suspect]
     Indication: GUILLAIN-BARRE SYNDROME
     Route: 065
     Dates: start: 20111028, end: 20111028
  2. GAMMAGARD LIQUID [Suspect]
     Route: 065
     Dates: start: 20111001
  3. GAMMAGARD LIQUID [Suspect]
     Indication: OFF LABEL USE
     Route: 065
     Dates: start: 20111028, end: 20111028
  4. GAMMAGARD LIQUID [Suspect]
     Route: 065
     Dates: start: 20111029, end: 20111029
  5. GAMMAGARD LIQUID [Suspect]
     Route: 065
     Dates: start: 20111029, end: 20111029
  6. GAMMAGARD LIQUID [Suspect]
     Route: 065
     Dates: start: 20111001

REACTIONS (3)
  - PARALYSIS [None]
  - APHASIA [None]
  - CEREBROVASCULAR ACCIDENT [None]
